FAERS Safety Report 5893621-0 (Version None)
Quarter: 2008Q3

REPORT INFORMATION
  Report Type: 
  Country: None (occurrence: None)
  Receive Date: 20080923
  Receipt Date: 20070920
  Transmission Date: 20090109
  Serious: No
  Sender: FDA-Public Use
  Company Number: US-ASTRAZENECA-2007UW22189

PATIENT
  Age: 15 Year

DRUGS (2)
  1. SEROQUEL [Suspect]
     Route: 048
  2. MARIJUANA [Concomitant]

REACTIONS (2)
  - EUPHORIC MOOD [None]
  - INTENTIONAL DRUG MISUSE [None]
